FAERS Safety Report 9503710 (Version 1)
Quarter: 2013Q3

REPORT INFORMATION
  Report Type: Spontaneous
  Country: FR (occurrence: FR)
  Receive Date: 20130906
  Receipt Date: 20130906
  Transmission Date: 20140515
  Serious: Yes (Hospitalization)
  Sender: FDA-Public Use
  Company Number: FR-PFIZER INC-2013253931

PATIENT
  Age: 79 Year
  Sex: Male

DRUGS (11)
  1. ZOLOFT [Suspect]
     Dosage: 50 MG, DAILY
     Route: 048
  2. TERALITHE [Suspect]
     Dosage: 400 MG PER DAY
     Route: 048
     Dates: start: 20130523, end: 20130528
  3. TERALITHE [Suspect]
     Dosage: 600 MG PER DAY
     Route: 048
     Dates: start: 20130528, end: 20130530
  4. THERALENE [Suspect]
     Dosage: 50 MG, DAILY
     Route: 048
     Dates: end: 20130530
  5. SERESTA [Suspect]
     Dosage: 50 MG, DAILY
     Route: 048
  6. TADENAN [Suspect]
     Dosage: 50 MG, DAILY
     Route: 048
     Dates: end: 20130530
  7. TAREG [Suspect]
     Dosage: 80 MG, DAILY
     Route: 048
     Dates: end: 20130530
  8. ATENOLOL [Suspect]
     Dosage: 50 MG, DAILY
     Route: 048
     Dates: end: 20130530
  9. JOSIR [Concomitant]
  10. INEXIUM [Concomitant]
     Dosage: 20 MG PER DAY
  11. PRAVADUAL [Concomitant]
     Dosage: 40/80 MG DAILY

REACTIONS (2)
  - Convulsion [Recovered/Resolved]
  - Status epilepticus [Recovered/Resolved]
